FAERS Safety Report 20709729 (Version 1)
Quarter: 2022Q2

REPORT INFORMATION
  Report Type: Report from Study
  Country: HN (occurrence: HN)
  Receive Date: 20220414
  Receipt Date: 20220414
  Transmission Date: 20220720
  Serious: Yes (Other)
  Sender: FDA-Public Use
  Company Number: HN-NOVARTISPH-NVSC2022HN083846

PATIENT
  Age: 83 Year
  Sex: Male

DRUGS (2)
  1. SACUBITRIL\VALSARTAN [Suspect]
     Active Substance: SACUBITRIL\VALSARTAN
     Indication: Blood pressure measurement
     Dosage: 50 MG
     Route: 065
     Dates: start: 202105, end: 202201
  2. SACUBITRIL\VALSARTAN [Suspect]
     Active Substance: SACUBITRIL\VALSARTAN
     Dosage: 200 MG
     Route: 065
     Dates: start: 202202

REACTIONS (6)
  - Blindness [Unknown]
  - Choking [Unknown]
  - Coronary artery disease [Unknown]
  - Cardiac disorder [Unknown]
  - Fatigue [Unknown]
  - Product use in unapproved indication [Unknown]
